FAERS Safety Report 10583625 (Version 1)
Quarter: 2014Q4

REPORT INFORMATION
  Report Type: Spontaneous
  Country: US (occurrence: None)
  Receive Date: 20141112
  Receipt Date: 20141112
  Transmission Date: 20150529
  Serious: Yes (Death)
  Sender: FDA-Public Use
  Company Number: 201410211

PATIENT
  Sex: Male

DRUGS (2)
  1. TESTIM [Suspect]
     Active Substance: TESTOSTERONE
     Indication: BLOOD TESTOSTERONE DECREASED
     Route: 062
  2. TESTIM [Suspect]
     Active Substance: TESTOSTERONE
     Indication: HYPOGONADISM
     Route: 062

REACTIONS (5)
  - Economic problem [None]
  - Thrombosis [None]
  - Cerebrovascular accident [None]
  - Pulmonary embolism [None]
  - Injury [None]
